FAERS Safety Report 4776390-7 (Version None)
Quarter: 2005Q3

REPORT INFORMATION
  Report Type: 
  Country: None (occurrence: None)
  Receive Date: 20050921
  Receipt Date: 20050906
  Transmission Date: 20060218
  Serious: Yes (Other)
  Sender: FDA-Public Use
  Company Number: 217624

PATIENT
  Age: 64 Year
  Sex: Male
  Weight: 79.65 kg

DRUGS (6)
  1. AVASTIN [Suspect]
     Indication: COLON CANCER
     Dosage: 398 MG, Q2W, INTRAVENOUS
     Route: 042
     Dates: start: 20050704
  2. OXALIPLATIN (OXALIPLATIN) [Suspect]
     Indication: COLON CANCER
     Dosage: 168 MG, Q2W, INTRAVENOUS
     Route: 042
     Dates: start: 20050704
  3. 5-FU(FLUOROURA IL) [Suspect]
     Indication: COLON CANCER
     Dosage: 792 MG, Q2W, INTRAVENOUS
     Route: 042
     Dates: start: 20050704
  4. LEUCOVORIN CALCIUM [Concomitant]
     Indication: COLON CANCER
     Dosage: 396 MG, Q2W, INTRAVENOUS
     Route: 042
     Dates: start: 20050704
  5. COUMARIN (COUMARIN) [Concomitant]
  6. PEPCID [Concomitant]

REACTIONS (7)
  - BLOOD CHOLESTEROL INCREASED [None]
  - BLOOD TRIGLYCERIDES INCREASED [None]
  - CHEST PAIN [None]
  - CREATINE PHOSPHOKINASE DECREASED [None]
  - DYSPNOEA [None]
  - FATIGUE [None]
  - PALPITATIONS [None]
